FAERS Safety Report 7030357 (Version 2)
Quarter: 2012Q4

REPORT INFORMATION
  Report Type: 
  Country: US (occurrence: US)
  Receive Date: 20090623
  Receipt Date: 20121206
  Transmission Date: 20130627
  Serious: No
  Sender: FDA-Public Use
  Company Number: US-ASTRAZENECA-2008UW05166

PATIENT
  Age: 61 Year
  Sex: Female
  Weight: 81.7 kg

DRUGS (6)
  1. PULMICORT FLEXHALER [Suspect]
     Indication: LUNG DISORDER
     Dosage: 180 MCG ONE INHALATION TWICE A DAY
     Route: 055
  2. PULMICORT FLEXHALER [Suspect]
     Indication: ASTHMA
     Dosage: 180 MCG ONE INHALATION TWICE A DAY
     Route: 055
  3. PULMICORT FLEXHALER [Suspect]
     Indication: LUNG DISORDER
     Dosage: 180 MCG ONE INHALATION ONCE A DAY
     Route: 055
  4. PULMICORT FLEXHALER [Suspect]
     Indication: ASTHMA
     Dosage: 180 MCG ONE INHALATION ONCE A DAY
     Route: 055
  5. SYMBICORT [Suspect]
     Dosage: UNKNOWN
     Route: 055
  6. QVAR [Concomitant]

REACTIONS (3)
  - Glossodynia [None]
  - Asthma [Unknown]
  - Dysphonia [None]
